FAERS Safety Report 19159543 (Version 1)
Quarter: 2021Q2

REPORT INFORMATION
  Report Type: Spontaneous
  Country: IL (occurrence: IL)
  Receive Date: 20210420
  Receipt Date: 20210420
  Transmission Date: 20210717
  Serious: Yes (Other)
  Sender: FDA-Public Use
  Company Number: IL-TEVA-2021-IL-1901876

PATIENT
  Age: 1 Year
  Sex: Male

DRUGS (1)
  1. IBOO 4% 200MG/5ML [Suspect]
     Active Substance: IBUPROFEN
     Dosage: 200MG/5ML
     Route: 065

REACTIONS (2)
  - Respiratory tract oedema [Unknown]
  - Dyspnoea [Unknown]
